FAERS Safety Report 18492324 (Version 8)
Quarter: 2021Q2

REPORT INFORMATION
  Report Type: Spontaneous
  Country: US (occurrence: US)
  Receive Date: 20201111
  Receipt Date: 20210607
  Transmission Date: 20210717
  Serious: Yes (Other)
  Sender: FDA-Public Use
  Company Number: US-PFIZER INC-2020443532

PATIENT
  Age: 49 Year
  Sex: Female

DRUGS (4)
  1. IBRANCE [Suspect]
     Active Substance: PALBOCICLIB
     Dosage: 100 MG, CYCLIC, (ONCE A DAY FOR 21 DAYS THEN ONE WEEK OFF   )
     Route: 048
     Dates: start: 202010
  2. FULVESTRANT. [Concomitant]
     Active Substance: FULVESTRANT
     Dosage: UNK, MONTHLY
  3. IBRANCE [Suspect]
     Active Substance: PALBOCICLIB
     Dosage: 125 MG, CYCLIC (QD X 21 DAYS)
     Dates: start: 20201017
  4. IBRANCE [Suspect]
     Active Substance: PALBOCICLIB
     Indication: BREAST CANCER FEMALE
     Dosage: 125 MG, CYCLIC (QD ON DAYS 1?21)
     Dates: start: 20201016

REACTIONS (22)
  - Illness [Unknown]
  - Chest pain [Unknown]
  - Fatigue [Not Recovered/Not Resolved]
  - Alopecia [Unknown]
  - COVID-19 [Unknown]
  - Emotional poverty [Unknown]
  - Rash [Recovering/Resolving]
  - Pain [Unknown]
  - Product dose omission issue [Unknown]
  - White blood cell count decreased [Unknown]
  - Hyperhidrosis [Not Recovered/Not Resolved]
  - Vitamin D increased [Unknown]
  - Weight increased [Unknown]
  - Insomnia [Unknown]
  - Memory impairment [Unknown]
  - Bone pain [Unknown]
  - Dyspnoea exertional [Unknown]
  - Stomatitis [Not Recovered/Not Resolved]
  - Blood calcium increased [Unknown]
  - Abdominal distension [Unknown]
  - Chromaturia [Unknown]
  - Hot flush [Not Recovered/Not Resolved]

NARRATIVE: CASE EVENT DATE: 2020
